FAERS Safety Report 17335742 (Version 1)
Quarter: 2020Q1

REPORT INFORMATION
  Report Type: Spontaneous
  Country: US (occurrence: US)
  Receive Date: 20200128
  Receipt Date: 20200128
  Transmission Date: 20200409
  Serious: No
  Sender: FDA-Public Use
  Company Number: US-BAYER-2020-015049

PATIENT
  Age: 70 Year
  Sex: Male

DRUGS (1)
  1. MIRALAX [Suspect]
     Active Substance: POLYETHYLENE GLYCOL 3350
     Indication: IRRITABLE BOWEL SYNDROME
     Dosage: 17 G, QD
     Route: 048
     Dates: start: 202001

REACTIONS (3)
  - Off label use [None]
  - Product packaging difficult to open [None]
  - Product use in unapproved indication [None]

NARRATIVE: CASE EVENT DATE: 202001
